FAERS Safety Report 7497421-X (Version None)
Quarter: 2011Q2

REPORT INFORMATION
  Report Type: 
  Country: None (occurrence: None)
  Receive Date: 20110523
  Receipt Date: 20110517
  Transmission Date: 20111010
  Serious: Yes (Death)
  Sender: FDA-Public Use
  Company Number: JP-PFIZER INC-2011098416

PATIENT
  Age: 91 Year
  Sex: Female
  Weight: 63.3 kg

DRUGS (5)
  1. GABAPENTIN [Suspect]
     Indication: NEURALGIA
     Dosage: 200 MG, 2X/DAY
     Dates: start: 20101208
  2. FUROSEMIDE [Concomitant]
     Dosage: 50 MG, 1X/DAY
     Route: 048
     Dates: start: 20101001, end: 20101220
  3. LANSOPRAZOLE [Concomitant]
     Dosage: UNK
     Route: 048
     Dates: start: 20100916, end: 20101220
  4. CELECOXIB [Concomitant]
     Dosage: 100 MG, 2X/DAY
     Route: 048
     Dates: start: 20100930, end: 20101220
  5. WARFARIN [Concomitant]
     Dosage: 1 MG, 1X/DAY
     Route: 048
     Dates: start: 20100929, end: 20101215

REACTIONS (1)
  - SEPSIS [None]
